FAERS Safety Report 13648071 (Version 1)
Quarter: 2017Q2

REPORT INFORMATION
  Report Type: Spontaneous
  Country: CN (occurrence: CN)
  Receive Date: 20170613
  Receipt Date: 20170613
  Transmission Date: 20170830
  Serious: Yes (Other)
  Sender: FDA-Public Use
  Company Number: CN-ASTRAZENECA-2017SE61579

PATIENT
  Sex: Female
  Weight: 62 kg

DRUGS (4)
  1. PULMICORT RESPULES [Suspect]
     Active Substance: BUDESONIDE
     Indication: INFLAMMATION
     Route: 055
     Dates: start: 20170108, end: 20170109
  2. PULMICORT RESPULES [Suspect]
     Active Substance: BUDESONIDE
     Indication: ASTHMA
     Route: 055
     Dates: start: 20170108, end: 20170109
  3. TERBUTALINE [Concomitant]
     Active Substance: TERBUTALINE
     Indication: INFLAMMATION
     Route: 065
     Dates: start: 20170108, end: 20170109
  4. TERBUTALINE [Concomitant]
     Active Substance: TERBUTALINE
     Indication: ASTHMA
     Route: 065
     Dates: start: 20170108, end: 20170109

REACTIONS (1)
  - Asthma [Recovering/Resolving]
